FAERS Safety Report 8441733 (Version 7)
Quarter: 2013Q2

REPORT INFORMATION
  Report Type: Spontaneous
  Country: US (occurrence: None)
  Receive Date: 20120224
  Receipt Date: 20130507
  Transmission Date: 20140414
  Serious: Yes (Hospitalization, Other)
  Sender: FDA-Public Use
  Company Number: ADR-2012-00383

PATIENT
  Sex: Male

DRUGS (1)
  1. LIORESAL [Suspect]
     Indication: MUSCLE SPASTICITY
     Dosage: 96 MCG/DAY

REACTIONS (7)
  - Device dislocation [None]
  - Implant site infection [None]
  - Implant site swelling [None]
  - Drug ineffective [None]
  - Medical device complication [None]
  - Infusion site scar [None]
  - Device leakage [None]
